FAERS Safety Report 8510136-1 (Version None)
Quarter: 2012Q3

REPORT INFORMATION
  Report Type: 
  Country: None (occurrence: None)
  Receive Date: 20120713
  Receipt Date: 20120710
  Transmission Date: 20120928
  Serious: Yes (Life-Threatening, Other)
  Sender: FDA-Public Use
  Company Number: GB-B.I. PHARMACEUTICALS,INC./RIDGEFIELD-2012-UK-00912UK

PATIENT
  Age: 76 Year
  Sex: Female
  Weight: 70 kg

DRUGS (11)
  1. VALPROATE SODIUM [Concomitant]
  2. METHYLDOPA [Concomitant]
  3. ALBUTEROL SULATE [Concomitant]
  4. EZETIMIBE [Concomitant]
  5. METFORMIN HYDROCHLORIDE [Concomitant]
  6. METOPROLOL TARTRATE [Concomitant]
  7. FLUTICASONE PROPIONATE/SALMETEROL [Concomitant]
  8. PRADAXA [Suspect]
     Indication: ATRIAL FIBRILLATION
     Route: 048
  9. ISOSORBIDE DINITRATE [Concomitant]
  10. DIGOXIN [Concomitant]
  11. ESOMEPRAZOLE [Concomitant]

REACTIONS (4)
  - LOWER GASTROINTESTINAL HAEMORRHAGE [None]
  - FLUID OVERLOAD [None]
  - MALAISE [None]
  - RECTAL HAEMORRHAGE [None]
